FAERS Safety Report 4434602-3 (Version None)
Quarter: 2004Q3

REPORT INFORMATION
  Report Type: 
  Country: None (occurrence: None)
  Receive Date: 20040721
  Receipt Date: 20030721
  Transmission Date: 20050211
  Serious: Yes (Life-Threatening, Hospitalization, Disabling)
  Sender: FDA-Public Use
  Company Number: WAES 0307USA02494

PATIENT
  Age: 72 Year
  Sex: Female

DRUGS (7)
  1. VIOXX [Suspect]
     Indication: BACK PAIN
     Dosage: 50 MG, DAILY, PO
     Route: 048
     Dates: start: 20030601
  2. CAPTOPRIL [Concomitant]
  3. EVISTA [Concomitant]
  4. GLUCOTROL [Concomitant]
  5. ZOCOR [Concomitant]
  6. CLONIDINE HCL [Concomitant]
  7. VERAPAMIL [Concomitant]

REACTIONS (1)
  - GASTRIC ULCER HAEMORRHAGE [None]
